FAERS Safety Report 4678154-1 (Version None)
Quarter: 2005Q2

REPORT INFORMATION
  Report Type: 
  Country: None (occurrence: None)
  Receive Date: 20050527
  Receipt Date: 20050518
  Transmission Date: 20051028
  Serious: Yes (Death)
  Sender: FDA-Public Use
  Company Number: 211102

PATIENT
  Age: 70 Year
  Sex: Male

DRUGS (5)
  1. MABTHERA (RITUXIMAB) CONC FOR SOLUTION FOR INFUSION [Suspect]
     Indication: LYMPHOMA
     Dates: start: 20040401, end: 20040901
  2. CYCLOPHOSPHAMIDE [Suspect]
     Indication: LYMPHOMA
     Dates: start: 20040401, end: 20040901
  3. VINCRISTINE [Suspect]
     Indication: LYMPHOMA
     Dates: start: 20040401, end: 20040901
  4. DOXORUBICIN HYDROCHLORIDE [Suspect]
     Indication: LYMPHOMA
     Dates: start: 20040401, end: 20040901
  5. PREDNISONE [Suspect]
     Indication: LYMPHOMA
     Dates: start: 20040401, end: 20040901

REACTIONS (7)
  - BACK PAIN [None]
  - COMA [None]
  - DIARRHOEA [None]
  - MENINGITIS PNEUMOCOCCAL [None]
  - PURULENCE [None]
  - PYREXIA [None]
  - SPINAL FRACTURE [None]
